FAERS Safety Report 9549696 (Version 2)
Quarter: 2013Q3

REPORT INFORMATION
  Report Type: Spontaneous
  Country: FR (occurrence: FR)
  Receive Date: 20130924
  Receipt Date: 20130924
  Transmission Date: 20140515
  Serious: Yes (Hospitalization)
  Sender: FDA-Public Use
  Company Number: FR-TEVA-412227ISR

PATIENT
  Age: 59 Year
  Sex: Male

DRUGS (9)
  1. MODIODAL 100 MG [Suspect]
     Indication: NARCOLEPSY
     Route: 048
     Dates: start: 201212, end: 20130304
  2. PARACETAMOL [Suspect]
     Indication: TONSILLITIS
     Route: 048
     Dates: start: 20130306, end: 20130313
  3. TEGRETOL [Suspect]
     Indication: BIPOLAR DISORDER
     Route: 048
     Dates: start: 20130215, end: 20130304
  4. LAROXYL [Suspect]
     Indication: BIPOLAR DISORDER
     Route: 048
     Dates: start: 201212, end: 20130304
  5. RULID [Suspect]
     Indication: TONSILLITIS
     Route: 048
     Dates: start: 20130306, end: 20130313
  6. HELCIDINE [Suspect]
     Indication: TONSILLITIS
     Route: 048
     Dates: start: 20130306, end: 20130313
  7. PIVALONE [Suspect]
     Indication: TONSILLITIS
     Route: 045
     Dates: start: 20130306, end: 20130313
  8. PARIET [Concomitant]
     Indication: PRODUCT USED FOR UNKNOWN INDICATION
  9. AERIUS [Concomitant]
     Indication: PRODUCT USED FOR UNKNOWN INDICATION

REACTIONS (2)
  - Drug reaction with eosinophilia and systemic symptoms [Recovered/Resolved]
  - Rash [Recovered/Resolved]
